FAERS Safety Report 5844809-6 (Version None)
Quarter: 2008Q3

REPORT INFORMATION
  Report Type: 
  Country: None (occurrence: None)
  Receive Date: 20080812
  Receipt Date: 20080718
  Transmission Date: 20090109
  Serious: Yes (Life-Threatening)
  Sender: FDA-Public Use
  Company Number: 91901

PATIENT
  Age: 29 Year
  Sex: Male

DRUGS (2)
  1. CETIRIZINE HCL [Suspect]
     Indication: SEASONAL ALLERGY
     Dosage: 10MG/ORAL
     Route: 048
     Dates: end: 20080615
  2. SODIUM CROMOGLICATE [Concomitant]

REACTIONS (3)
  - CARDIAC ARREST [None]
  - CONVULSION [None]
  - FALL [None]
